FAERS Safety Report 8450626-3 (Version None)
Quarter: 2012Q2

REPORT INFORMATION
  Report Type: 
  Country: None (occurrence: None)
  Receive Date: 20120620
  Receipt Date: 20120611
  Transmission Date: 20120825
  Serious: Yes (Hospitalization, Other)
  Sender: FDA-Public Use
  Company Number: DK-PFIZER INC-2012044852

PATIENT
  Age: 78 Year
  Sex: Female
  Weight: 58 kg

DRUGS (27)
  1. DOXORUBICIN HCL [Suspect]
     Dosage: 90 MG, UNK
     Dates: start: 20120123, end: 20120101
  2. PREDNISONE [Suspect]
     Dosage: 100 MG, UNK
     Route: 048
     Dates: start: 20120213, end: 20120201
  3. VINCRISTINE [Suspect]
     Dosage: 42 MG, UNK
     Route: 042
     Dates: start: 20120123, end: 20120101
  4. VINCRISTINE [Suspect]
     Dosage: 2 MG
     Route: 042
     Dates: start: 20120213
  5. SIMVASTATIN [Concomitant]
     Dosage: 15 MG, UNK
     Dates: start: 20111219
  6. MORPHINE SULFATE [Concomitant]
     Dosage: 10 MG, UNK
     Route: 048
     Dates: start: 20111201
  7. PREDNISONE [Suspect]
     Indication: DIFFUSE LARGE B-CELL LYMPHOMA
     Dosage: 100 MG, UNK
     Route: 048
     Dates: start: 20120109, end: 20120101
  8. CYCLOPHOSPHAMIDE [Suspect]
     Dosage: 1275 MG, UNK
     Route: 042
     Dates: start: 20120213
  9. PEGFILGRASTIM [Suspect]
     Indication: DIFFUSE LARGE B-CELL LYMPHOMA
     Dosage: 6 MG, UNK
     Route: 058
     Dates: start: 20120110
  10. SIMVASTATIN [Concomitant]
     Dosage: 40 MG, UNK
     Dates: start: 20110914
  11. SIMVASTATIN [Concomitant]
     Indication: BLOOD CHOLESTEROL INCREASED
     Dosage: 40 MG, UNK
     Route: 048
     Dates: start: 20100917
  12. DOXORUBICIN HCL [Suspect]
     Indication: DIFFUSE LARGE B-CELL LYMPHOMA
     Dosage: 88 MG, UNK
     Route: 042
     Dates: start: 20120109
  13. PREDNISONE [Suspect]
     Dosage: 100 MG, UNK
     Route: 048
     Dates: start: 20120123, end: 20120101
  14. PREDNISONE [Suspect]
     Dosage: 100 MG, UNK
     Route: 048
     Dates: start: 20120217
  15. RITUXIMAB [Suspect]
     Indication: DIFFUSE LARGE B-CELL LYMPHOMA
     Dosage: 600 MG, UNK
     Route: 042
     Dates: start: 20120109
  16. RITUXIMAB [Suspect]
     Dosage: 700 MG, UNK
     Route: 042
     Dates: start: 20120123, end: 20120101
  17. PANTOPRAZOLE [Concomitant]
     Indication: DYSPEPSIA
     Dosage: 40 MG, UNK
     Route: 048
     Dates: start: 20120105
  18. TENORETIC 100 [Concomitant]
     Indication: HYPERTENSION
     Dosage: 72.5 MG, UNK
     Route: 048
     Dates: start: 20111218
  19. VENLAFAXINE HYDROCHLORIDE [Concomitant]
     Indication: DEPRESSION
     Dosage: 75 MG, UNK
     Route: 048
     Dates: start: 20120105
  20. RITUXIMAB [Suspect]
     Dosage: 600 MG, UNK
     Route: 042
     Dates: start: 20120218
  21. CYCLOPHOSPHAMIDE [Suspect]
     Indication: DIFFUSE LARGE B-CELL LYMPHOMA
     Dosage: 1320 MG, UNK
     Route: 042
     Dates: start: 20120109, end: 20120101
  22. CYCLOPHOSPHAMIDE [Suspect]
     Dosage: 1350 MG, UNK
     Route: 042
     Dates: start: 20120123, end: 20120101
  23. MIRTAZAPINE [Concomitant]
     Indication: DEPRESSION
     Dosage: 15 MG, UNK
     Route: 048
     Dates: start: 20111219
  24. DOXORUBICIN HCL [Suspect]
     Dosage: 85 MG, UNK
     Route: 042
     Dates: start: 20120213
  25. VINCRISTINE [Suspect]
     Indication: DIFFUSE LARGE B-CELL LYMPHOMA
     Dosage: 2 MG, UNK
     Route: 042
     Dates: start: 20120109, end: 20120101
  26. PEGFILGRASTIM [Suspect]
     Dosage: 6 MG, UNK
     Route: 058
     Dates: start: 20120128, end: 20120101
  27. PEGFILGRASTIM [Suspect]
     Dosage: 6 MG, UNK
     Route: 058
     Dates: start: 20120214

REACTIONS (4)
  - ORAL CANDIDIASIS [None]
  - DIZZINESS [None]
  - WEIGHT DECREASED [None]
  - DEHYDRATION [None]
